FAERS Safety Report 6858430-4 (Version None)
Quarter: 2010Q3

REPORT INFORMATION
  Report Type: 
  Country: None (occurrence: None)
  Receive Date: 20100719
  Receipt Date: 20080201
  Transmission Date: 20110219
  Serious: No
  Sender: FDA-Public Use
  Company Number: US-PFIZER INC-2008013283

PATIENT
  Sex: Female
  Weight: 59 kg

DRUGS (6)
  1. CHANTIX [Suspect]
     Indication: SMOKING CESSATION THERAPY
     Dates: start: 20080101
  2. SYNTHROID [Concomitant]
  3. ATORVASTATIN [Concomitant]
  4. OTHER HYPNOTICS AND SEDATIVES [Concomitant]
  5. TIOTROPIUM BROMIDE [Concomitant]
  6. ADVAIR DISKUS 100/50 [Concomitant]

REACTIONS (3)
  - CONSTIPATION [None]
  - NAUSEA [None]
  - SLEEP DISORDER [None]
